FAERS Safety Report 6079203-9 (Version None)
Quarter: 2009Q1

REPORT INFORMATION
  Report Type: 
  Country: None (occurrence: None)
  Receive Date: 20090216
  Receipt Date: 20090211
  Transmission Date: 20090719
  Serious: Yes (Hospitalization)
  Sender: FDA-Public Use
  Company Number: B0558725A

PATIENT
  Age: 69 Year
  Sex: Male

DRUGS (8)
  1. AMOXICILLIN AND CLAVULANATE POTASSIUM [Suspect]
     Dosage: 1G TWICE PER DAY
     Route: 065
     Dates: start: 20080821, end: 20080826
  2. CIFLOX [Suspect]
     Dosage: 500MG TWICE PER DAY
     Route: 065
     Dates: start: 20080821, end: 20080826
  3. FUCIDINE CAP [Suspect]
     Route: 061
     Dates: start: 20080821, end: 20080826
  4. BISEPTINE [Suspect]
     Route: 061
     Dates: start: 20080821, end: 20080826
  5. CRESTOR [Concomitant]
     Route: 048
  6. ATACAND [Concomitant]
     Indication: HYPERTENSION
     Route: 048
  7. NEBILOX [Concomitant]
     Dosage: 1.5UNIT PER DAY
     Route: 048
  8. PREVISCAN [Concomitant]
     Indication: THROMBOSIS
     Dosage: 1UNIT PER DAY
     Route: 048

REACTIONS (4)
  - PYREXIA [None]
  - RASH MACULO-PAPULAR [None]
  - RASH PAPULAR [None]
  - VASCULAR PURPURA [None]
